FAERS Safety Report 18230557 (Version 1)
Quarter: 2020Q3

REPORT INFORMATION
  Report Type: Other
  Country: GB (occurrence: ES)
  Receive Date: 20200904
  Receipt Date: 20200904
  Transmission Date: 20201103
  Serious: Yes (Death, Other)
  Sender: FDA-Public Use
  Company Number: ES-ASTELLAS-2020US030349

PATIENT
  Age: 48 Year
  Sex: Female

DRUGS (6)
  1. ERLOTINIB [Suspect]
     Active Substance: ERLOTINIB
     Indication: CHRONIC MYELOID LEUKAEMIA
     Route: 065
  2. IMATINIB. [Interacting]
     Active Substance: IMATINIB MESYLATE
     Indication: LUNG ADENOCARCINOMA
     Route: 065
  3. GEFITINIB. [Interacting]
     Active Substance: GEFITINIB
     Indication: CHRONIC MYELOID LEUKAEMIA
  4. IMATINIB. [Interacting]
     Active Substance: IMATINIB MESYLATE
     Indication: CHRONIC MYELOID LEUKAEMIA
     Route: 065
  5. IMATINIB. [Interacting]
     Active Substance: IMATINIB MESYLATE
     Route: 065
  6. GEFITINIB. [Interacting]
     Active Substance: GEFITINIB
     Indication: LUNG ADENOCARCINOMA
     Route: 065

REACTIONS (5)
  - Gastrointestinal toxicity [Unknown]
  - Off label use [Unknown]
  - Asthenia [Unknown]
  - Product use in unapproved indication [Unknown]
  - Pancreatitis acute [Fatal]
